FAERS Safety Report 9618607 (Version 1)
Quarter: 2013Q4

REPORT INFORMATION
  Report Type: Spontaneous
  Country: US (occurrence: US)
  Receive Date: 20131014
  Receipt Date: 20131014
  Transmission Date: 20140711
  Serious: No
  Sender: FDA-Public Use
  Company Number: US-PFIZER INC-2013290584

PATIENT
  Age: 54 Year
  Sex: Female
  Weight: 65.76 kg

DRUGS (5)
  1. VFEND [Suspect]
     Indication: ASPERGILLUS INFECTION
     Dosage: UNK
     Dates: start: 2007, end: 2009
  2. VFEND [Suspect]
     Dosage: 200 MG, 2X/DAY
     Dates: start: 201308, end: 201309
  3. RAPAMUNE [Concomitant]
     Indication: LUNG TRANSPLANT
     Dosage: 1 MG, 1X/DAY
  4. PROGRAF [Concomitant]
     Indication: LUNG TRANSPLANT
     Dosage: 2MG IN THE MORNING AND 3MG IN THE AFTERNOON, 2X/DAY
  5. PREDNISONE [Concomitant]
     Indication: LUNG TRANSPLANT
     Dosage: 5 MG, DAILY

REACTIONS (7)
  - Blood glucose increased [Recovering/Resolving]
  - Blood triglycerides increased [Recovering/Resolving]
  - Blood cholesterol increased [Recovering/Resolving]
  - Arthralgia [Recovering/Resolving]
  - Drug ineffective [Unknown]
  - Oedema peripheral [Recovering/Resolving]
  - Hepatic enzyme increased [Recovering/Resolving]
